FAERS Safety Report 5940699-1 (Version None)
Quarter: 2008Q4

REPORT INFORMATION
  Report Type: 
  Country: None (occurrence: None)
  Receive Date: 20081103
  Receipt Date: 20081103
  Transmission Date: 20090506
  Serious: No
  Sender: FDA-Public Use
  Company Number: None

PATIENT
  Age: 57 Year
  Sex: Female
  Weight: 43.0917 kg

DRUGS (1)
  1. RECLAST [Suspect]

REACTIONS (4)
  - BACK PAIN [None]
  - DISCOMFORT [None]
  - MUSCLE SPASMS [None]
  - NECK PAIN [None]
